FAERS Safety Report 5676383-1 (Version None)
Quarter: 2008Q1

REPORT INFORMATION
  Report Type: 
  Country: None (occurrence: None)
  Receive Date: 20080321
  Receipt Date: 20080311
  Transmission Date: 20080703
  Serious: Yes (Hospitalization, Disabling)
  Sender: FDA-Public Use
  Company Number: IT-PFIZER INC-2008023469

PATIENT
  Sex: Male

DRUGS (5)
  1. CHAMPIX [Suspect]
     Indication: SMOKING CESSATION THERAPY
     Route: 048
     Dates: start: 20080212, end: 20080220
  2. DIAMICRON [Concomitant]
  3. TORVAST [Concomitant]
  4. COMBISARTAN [Concomitant]
  5. ASPIRIN [Concomitant]

REACTIONS (6)
  - DRY MOUTH [None]
  - INSOMNIA [None]
  - PARAESTHESIA ORAL [None]
  - TACHYCARDIA [None]
  - TREMOR [None]
  - VERTIGO [None]
